FAERS Safety Report 7213373-1 (Version None)
Quarter: 2010Q4

REPORT INFORMATION
  Report Type: 
  Country: None (occurrence: None)
  Receive Date: 20101126
  Receipt Date: 20100330
  Transmission Date: 20110411
  Serious: Yes (Disabling, Other)
  Sender: FDA-Public Use
  Company Number: WAES 0609USA00786

PATIENT
  Age: 68 Year
  Sex: Female
  Weight: 59.8748 kg

DRUGS (9)
  1. FOSAMAX [Suspect]
     Indication: OSTEOPOROSIS
     Dosage: 10 MG/DAILY/PO, 70 MG/WKY/PO
     Route: 048
     Dates: start: 19950101, end: 20001210
  2. CITRACAL [Concomitant]
  3. ELAVIL [Concomitant]
  4. ESTRACE [Concomitant]
  5. SYNTHROID [Concomitant]
  6. TRAMADOL HCL [Concomitant]
  7. GLUCOSAMINE [Concomitant]
  8. PREDNISONE [Concomitant]
  9. MULTIVITAMIN [Concomitant]

REACTIONS (25)
  - ABSCESS [None]
  - BACK PAIN [None]
  - CERUMEN IMPACTION [None]
  - CLUSTER HEADACHE [None]
  - DIARRHOEA [None]
  - HAEMANGIOMA [None]
  - JOINT SWELLING [None]
  - LOW DENSITY LIPOPROTEIN INCREASED [None]
  - LUMBAR SPINAL STENOSIS [None]
  - LYMPHADENOPATHY [None]
  - LYMPHOCYTOSIS [None]
  - MOUTH ULCERATION [None]
  - OSTEOARTHRITIS [None]
  - OSTEOMYELITIS [None]
  - OSTEONECROSIS [None]
  - OSTEOPOROSIS [None]
  - PHARYNGEAL LESION [None]
  - PHARYNGITIS [None]
  - PYREXIA [None]
  - RECTAL HAEMORRHAGE [None]
  - SPINAL COMPRESSION FRACTURE [None]
  - SPINAL OSTEOARTHRITIS [None]
  - TONSILLAR CYST [None]
  - URINARY TRACT INFECTION [None]
  - WHITE BLOOD CELL COUNT INCREASED [None]
